FAERS Safety Report 12567837 (Version 1)
Quarter: 2016Q3

REPORT INFORMATION
  Report Type: Spontaneous
  Country: US (occurrence: US)
  Receive Date: 20160718
  Receipt Date: 20160718
  Transmission Date: 20161109
  Serious: No
  Sender: FDA-Public Use
  Company Number: US-ASTRAZENECA-2016SE53824

PATIENT
  Age: 62 Year
  Sex: Male
  Weight: 88.5 kg

DRUGS (2)
  1. SYMBICORT [Suspect]
     Active Substance: BUDESONIDE\FORMOTEROL FUMARATE DIHYDRATE
     Indication: BRONCHITIS
     Dosage: 160/4.5 MCG , 2 PUFFS IN THE MORNING AND 2 IN THE AFTERNOON
     Route: 055
     Dates: start: 2010
  2. SYMBICORT [Suspect]
     Active Substance: BUDESONIDE\FORMOTEROL FUMARATE DIHYDRATE
     Indication: CHRONIC OBSTRUCTIVE PULMONARY DISEASE
     Dosage: 160/4.5 MCG , 2 PUFFS IN THE MORNING AND 2 IN THE AFTERNOON
     Route: 055
     Dates: start: 2010

REACTIONS (4)
  - Product expiration date issue [Unknown]
  - Seasonal allergy [Unknown]
  - Cough [Unknown]
  - Drug dispensing error [Unknown]

NARRATIVE: CASE EVENT DATE: 2010
